FAERS Safety Report 4984802-9 (Version None)
Quarter: 2006Q2

REPORT INFORMATION
  Report Type: 
  Country: None (occurrence: None)
  Receive Date: 20060427
  Receipt Date: 20050829
  Transmission Date: 20061013
  Serious: Yes (Hospitalization)
  Sender: FDA-Public Use
  Company Number: US-MERCK-0508USA04688

PATIENT
  Age: 52 Year
  Sex: Male
  Weight: 102 kg

DRUGS (2)
  1. VIOXX [Suspect]
     Indication: OSTEOARTHRITIS
     Route: 048
     Dates: start: 20040101, end: 20040901
  2. VIOXX [Suspect]
     Indication: NERVE COMPRESSION
     Route: 048
     Dates: start: 20040101, end: 20040901

REACTIONS (10)
  - ACUTE MYOCARDIAL INFARCTION [None]
  - ATRIAL FIBRILLATION [None]
  - CARDIAC FAILURE CONGESTIVE [None]
  - CELLULITIS [None]
  - CORONARY ARTERY DISEASE [None]
  - HAEMATOMA [None]
  - HYPERTHYROIDISM [None]
  - HYPOTENSION [None]
  - INJURY [None]
  - PLEURAL EFFUSION [None]
